FAERS Safety Report 8116574-3 (Version None)
Quarter: 2012Q1

REPORT INFORMATION
  Report Type: 
  Country: None (occurrence: None)
  Receive Date: 20120206
  Receipt Date: 20120131
  Transmission Date: 20120608
  Serious: Yes (Other)
  Sender: FDA-Public Use
  Company Number: JP-AMGEN-JPNCT2012007155

PATIENT
  Age: 60 Year
  Sex: Male

DRUGS (2)
  1. PANITUMUMAB [Suspect]
     Indication: COLORECTAL CANCER
     Dosage: 500 MG, Q2WK
     Route: 041
     Dates: start: 20120117
  2. ACTOS [Suspect]
     Dosage: 15 MG, UNK
     Route: 048
     Dates: start: 20110303

REACTIONS (1)
  - BLADDER CANCER [None]
